FAERS Safety Report 24036925 (Version 1)
Quarter: 2024Q3

REPORT INFORMATION
  Report Type: Spontaneous
  Country: US (occurrence: US)
  Receive Date: 20240701
  Receipt Date: 20240701
  Transmission Date: 20241017
  Serious: Yes (Other)
  Sender: DR REDDYS
  Company Number: US-DRL-USA-LIT/USA/24/0009313

PATIENT
  Age: 68 Year
  Sex: Male

DRUGS (10)
  1. COLCHICINE [Suspect]
     Active Substance: COLCHICINE
     Indication: Pericarditis
  2. COLCHICINE [Suspect]
     Active Substance: COLCHICINE
     Indication: Immunosuppression
  3. DOXYCYCLINE [Suspect]
     Active Substance: DOXYCYCLINE\DOXYCYCLINE HYCLATE
     Indication: Whipple^s disease
  4. CEFTRIAXONE [Suspect]
     Active Substance: CEFTRIAXONE\CEFTRIAXONE SODIUM
     Indication: Whipple^s disease
  5. PREDNISONE [Suspect]
     Active Substance: PREDNISONE
     Indication: Immunosuppression
     Dosage: 7-10 MG DAILY
  6. METHOTREXATE [Suspect]
     Active Substance: METHOTREXATE
     Indication: Immunosuppression
  7. CANAKINUMAB [Suspect]
     Active Substance: CANAKINUMAB
     Indication: Immunosuppression
     Route: 058
  8. COTRIMOXAZOLE [Suspect]
     Active Substance: SULFAMETHOXAZOLE\TRIMETHOPRIM
     Indication: Whipple^s disease
  9. HYDROXYCHLOROQUINE [Suspect]
     Active Substance: HYDROXYCHLOROQUINE
     Indication: Whipple^s disease
  10. SULFASALAZINE [Suspect]
     Active Substance: SULFASALAZINE
     Indication: Autoinflammatory disease
     Dosage: 7-10 MG DAILY

REACTIONS (7)
  - Whipple^s disease [Recovering/Resolving]
  - Hyperkalaemia [Unknown]
  - Bacterial infection [Recovering/Resolving]
  - Product use in unapproved indication [Unknown]
  - Periorbital swelling [Unknown]
  - Erythema [Unknown]
  - Cellulitis [Recovered/Resolved]
